FAERS Safety Report 15936321 (Version 1)
Quarter: 2019Q1

REPORT INFORMATION
  Report Type: Spontaneous
  Country: US (occurrence: US)
  Receive Date: 20190208
  Receipt Date: 20190208
  Transmission Date: 20190417
  Serious: No
  Sender: FDA-Public Use
  Company Number: US-ASTRAZENECA-2019SE05667

PATIENT
  Sex: Female
  Weight: 58.1 kg

DRUGS (4)
  1. PREDNISONE. [Concomitant]
     Active Substance: PREDNISONE
     Indication: CORNEAL TRANSPLANT
     Route: 047
  2. PREDNISONE. [Concomitant]
     Active Substance: PREDNISONE
     Indication: CORNEAL TRANSPLANT
     Dosage: 1 PERCENT SUSPENSION, ONE DROP TWICE A DAY IN THE RIGHT EYE
     Route: 047
  3. SINGULAIR [Concomitant]
     Active Substance: MONTELUKAST SODIUM
     Indication: ASTHMA
     Route: 048
  4. PULMICORT FLEXHALER [Suspect]
     Active Substance: BUDESONIDE
     Indication: ASTHMA
     Route: 055
     Dates: start: 2018

REACTIONS (6)
  - Eye swelling [Unknown]
  - Wrong technique in device usage process [Unknown]
  - Intentional device misuse [Unknown]
  - Eye inflammation [Unknown]
  - Device malfunction [Unknown]
  - Dyspnoea [Unknown]
